FAERS Safety Report 8660601 (Version 3)
Quarter: 2013Q4

REPORT INFORMATION
  Report Type: Spontaneous
  Country: DE (occurrence: DE)
  Receive Date: 20120711
  Receipt Date: 20131031
  Transmission Date: 20140711
  Serious: Yes (Death, Life-Threatening, Hospitalization, Other)
  Sender: FDA-Public Use
  Company Number: DE-MSD-2012SP034464

PATIENT
  Age: 37 Year
  Sex: Female

DRUGS (9)
  1. VICTRELIS [Suspect]
     Indication: HEPATITIS C
     Dosage: 3 X 800
     Dates: start: 20120202, end: 20120619
  2. PEGINTRON [Suspect]
     Indication: HEPATITIS C
     Dosage: 180 MICG, QW
     Dates: start: 20120105, end: 20120619
  3. COPEGUS [Suspect]
     Indication: HEPATITIS C
     Dosage: 1600 MG
     Dates: start: 20120105, end: 20120619
  4. HALOPERIDOL [Concomitant]
     Indication: PRODUCT USED FOR UNKNOWN INDICATION
  5. METOCLOPRAMIDE [Concomitant]
     Indication: PRODUCT USED FOR UNKNOWN INDICATION
  6. RAMIPRIL [Concomitant]
     Indication: PRODUCT USED FOR UNKNOWN INDICATION
  7. CARMEN [Concomitant]
     Indication: PRODUCT USED FOR UNKNOWN INDICATION
  8. MIRTAZAPIN STADA [Concomitant]
     Indication: DEPRESSION
     Dosage: 15 MG, UNK
     Dates: start: 20120529
  9. CITALOPRAM [Concomitant]
     Indication: DEPRESSION
     Dosage: 20 MG, UNK
     Dates: start: 20120412

REACTIONS (5)
  - Hepatic failure [Fatal]
  - Renal failure [Fatal]
  - Sepsis [Fatal]
  - Vomiting [Unknown]
  - Urinary tract infection [Unknown]
